FAERS Safety Report 9659883 (Version 3)
Quarter: 2014Q4

REPORT INFORMATION
  Report Type: Report from Study
  Country: BR (occurrence: BR)
  Receive Date: 20131031
  Receipt Date: 20141206
  Transmission Date: 20150529
  Serious: Yes (Life-Threatening, Hospitalization, Disabling)
  Sender: FDA-Public Use
  Company Number: BR-ROCHE-1296341

PATIENT
  Sex: Female
  Weight: 65.06 kg

DRUGS (12)
  1. DIPYRONE [Suspect]
     Active Substance: DIPYRONE
     Indication: PAIN IN EXTREMITY
     Route: 065
  2. DOMPERIDONE [Concomitant]
     Active Substance: DOMPERIDONE
     Route: 065
     Dates: start: 2010
  3. ALENIA (BRAZIL) [Concomitant]
     Active Substance: BUDESONIDE\FORMOTEROL FUMARATE
     Route: 065
     Dates: start: 2005
  4. BUDESONID [Concomitant]
     Active Substance: BUDESONIDE
  5. SUSTRATE [Concomitant]
     Active Substance: PROPATYL NITRATE
  6. KOLANTYL [Concomitant]
     Active Substance: DICYCLOMINE HYDROCHLORIDE
  7. AMITRIPTYLINE HYDROCHLORIDE. [Concomitant]
     Active Substance: AMITRIPTYLINE HYDROCHLORIDE
     Route: 065
     Dates: start: 2010
  8. OMEPRAZOLE. [Concomitant]
     Active Substance: OMEPRAZOLE
     Route: 065
     Dates: start: 2010
  9. GAVISCON (ALGINIC ACID) [Concomitant]
     Route: 065
     Dates: start: 2010
  10. VASLIP (BRAZIL) [Concomitant]
  11. XOLAIR [Suspect]
     Active Substance: OMALIZUMAB
     Indication: ASTHMA
     Dosage: 1 AMPOULE
     Route: 058
     Dates: start: 20131014
  12. XOLAIR [Suspect]
     Active Substance: OMALIZUMAB
     Indication: HYPERSENSITIVITY

REACTIONS (16)
  - Fall [Recovered/Resolved]
  - Nasopharyngitis [Recovered/Resolved]
  - Respiratory arrest [Recovered/Resolved]
  - Pain in extremity [Not Recovered/Not Resolved]
  - Fear [Unknown]
  - Abasia [Recovering/Resolving]
  - Tendonitis [Not Recovered/Not Resolved]
  - Nasal polyps [Unknown]
  - Feeling abnormal [Unknown]
  - Paraparesis [Unknown]
  - Hypoaesthesia [Recovering/Resolving]
  - Malaise [Unknown]
  - Swelling face [Unknown]
  - Vomiting [Unknown]
  - Movement disorder [Recovering/Resolving]
  - Sinusitis [Recovered/Resolved]
